FAERS Safety Report 9233955 (Version 1)
Quarter: 2013Q1

REPORT INFORMATION
  Report Type: Spontaneous
  Country: US (occurrence: None)
  Receive Date: 20121031
  Receipt Date: 20121031
  Transmission Date: 20140127
  Serious: No
  Sender: FDA-Public Use
  Company Number: PHEH2012US015316

PATIENT
  Age: 61 Year
  Sex: Male
  Weight: 95.26 kg

DRUGS (5)
  1. GILENYA [Suspect]
     Route: 048
  2. OLOPATADINE HYDROCHLORIDE [Concomitant]
  3. VITAMIN D (ERGOCALCIFEROL) CAPSULE [Concomitant]
  4. PROVIGIL (MODAFINIL) TABLET [Concomitant]
  5. MULTITABS (FERROUS FUMARATE, MINERALS NOS, VITAMINS NOS) [Concomitant]

REACTIONS (2)
  - Nausea [None]
  - Diarrhoea [None]
